FAERS Safety Report 17075199 (Version 2)
Quarter: 2019Q4

REPORT INFORMATION
  Report Type: Report from Study
  Country: TW (occurrence: TW)
  Receive Date: 20191126
  Receipt Date: 20191202
  Transmission Date: 20200122
  Serious: Yes (Hospitalization)
  Sender: FDA-Public Use
  Company Number: TW-ROCHE-2472728

PATIENT
  Age: 82 Year
  Sex: Male
  Weight: 43.5 kg

DRUGS (49)
  1. MTIG7192A (ANTI-TIGIT MAB) [Suspect]
     Active Substance: TIRAGOLUMAB
     Indication: NON-SMALL CELL LUNG CANCER
     Dosage: DATE OF MOST RECENT DOSE OF MTIG7192A PRIOR TO AE ONSET - 19/AUG/2019 AT 15:31
     Route: 042
     Dates: start: 20181231
  2. INDERAL [Concomitant]
     Active Substance: PROPRANOLOL HYDROCHLORIDE
     Indication: ARTERIOSCLEROSIS CORONARY ARTERY
     Route: 048
     Dates: start: 20190304
  3. INDERAL [Concomitant]
     Active Substance: PROPRANOLOL HYDROCHLORIDE
     Indication: HYPERTENSION
  4. ENCORE [ACETYLCYSTEINE] [Concomitant]
     Route: 011
     Dates: start: 20191017, end: 20191021
  5. TAKEPRON [Concomitant]
     Active Substance: LANSOPRAZOLE
     Indication: GASTROOESOPHAGEAL REFLUX DISEASE
     Route: 048
     Dates: start: 20191018, end: 20191111
  6. ATROVENT [Concomitant]
     Active Substance: IPRATROPIUM BROMIDE
     Route: 065
     Dates: start: 20191021, end: 20191029
  7. MEPEM [MEROPENEM] [Concomitant]
     Active Substance: MEROPENEM
     Indication: PNEUMONIA
     Route: 042
     Dates: start: 20191001, end: 20191012
  8. INDERAL [Concomitant]
     Active Substance: PROPRANOLOL HYDROCHLORIDE
     Indication: ARTERIOSCLEROSIS CORONARY ARTERY
     Route: 048
     Dates: start: 20191108
  9. ATEZOLIZUMAB. [Suspect]
     Active Substance: ATEZOLIZUMAB
     Indication: NON-SMALL CELL LUNG CANCER
     Dosage: DATE OF MOST RECENT DOSE 1200 MG OF ATEZOLIZUMAB PRIOR TO AE ONSET- 19/AUG/2019 AT 13:22
     Route: 042
     Dates: start: 20181231
  10. INDERAL [Concomitant]
     Active Substance: PROPRANOLOL HYDROCHLORIDE
     Indication: CONGESTIVE CARDIOMYOPATHY
  11. TETANUS TOXOID ADSORBED (VACCINE) [Concomitant]
     Active Substance: CLOSTRIDIUM TETANI TOXOID ANTIGEN (FORMALDEHYDE INACTIVATED)
     Indication: FALL
     Dosage: 250 (UNIT)
     Route: 058
     Dates: start: 20190719
  12. ZOVIRAX [Concomitant]
     Active Substance: ACYCLOVIR
     Indication: HERPES SIMPLEX
     Route: 042
     Dates: start: 20191022, end: 20191022
  13. ACLOVIR [Concomitant]
     Indication: HERPES SIMPLEX
     Dosage: 1 UNKNOWN
     Route: 061
     Dates: start: 20191023, end: 20191027
  14. BISACODYL. [Concomitant]
     Active Substance: BISACODYL
     Route: 054
     Dates: start: 20191010, end: 20191018
  15. CLOPIDOGREL [Concomitant]
     Active Substance: CLOPIDOGREL BISULFATE
     Indication: ARTERIOSCLEROSIS CORONARY ARTERY
     Route: 048
     Dates: start: 20191005
  16. ATROVENT [Concomitant]
     Active Substance: IPRATROPIUM BROMIDE
     Route: 065
     Dates: start: 20191031, end: 20191103
  17. TETANUS TOXOID ADSORBED (VACCINE) [Concomitant]
     Active Substance: CLOSTRIDIUM TETANI TOXOID ANTIGEN (FORMALDEHYDE INACTIVATED)
     Indication: FALL
     Dosage: DOSE 25 U
     Route: 058
     Dates: start: 20190719
  18. ALDARA [Concomitant]
     Active Substance: IMIQUIMOD
     Indication: PAPILLOMA VIRAL INFECTION
     Dosage: 1 UNKNOWN
     Route: 061
     Dates: start: 20191023, end: 20191111
  19. MEPEM [MEROPENEM] [Concomitant]
     Active Substance: MEROPENEM
     Route: 042
     Dates: start: 20191014, end: 20191016
  20. SULFASIL [Concomitant]
     Indication: PAPILLOMA VIRAL INFECTION
     Dosage: 1 UNKNOWN
     Route: 061
     Dates: start: 20191014, end: 20191015
  21. KASCOAL [Concomitant]
     Indication: ABDOMINAL DISTENSION
     Route: 048
     Dates: start: 20191014, end: 20191015
  22. DIPHENHYDRAMINE HCL [Concomitant]
     Active Substance: DIPHENHYDRAMINE HYDROCHLORIDE
     Indication: TRANSFUSION
     Route: 042
     Dates: start: 20191003, end: 20191014
  23. LASIX [Concomitant]
     Active Substance: FUROSEMIDE
     Indication: HYPERTENSION
     Route: 048
     Dates: start: 20191017, end: 20191020
  24. ATROVENT [Concomitant]
     Active Substance: IPRATROPIUM BROMIDE
     Route: 065
     Dates: start: 20191017, end: 20191021
  25. PROCIL [Concomitant]
     Indication: HYPERTHYROIDISM
     Route: 048
     Dates: start: 20190628
  26. CETAZONE [CEFMETAZOLE SODIUM] [Concomitant]
     Route: 042
     Dates: start: 20191112, end: 20191113
  27. DIFLUCAN [Concomitant]
     Active Substance: FLUCONAZOLE
     Indication: PNEUMONIA
     Route: 042
     Dates: start: 20191011, end: 20191015
  28. XYZAL [Concomitant]
     Active Substance: LEVOCETIRIZINE DIHYDROCHLORIDE
     Indication: ECZEMA
  29. POLUPI [Concomitant]
     Indication: HYPERTHYROIDISM
     Route: 048
     Dates: start: 20190517
  30. ENCORE [ACETYLCYSTEINE] [Concomitant]
     Route: 065
     Dates: start: 20191021, end: 20191030
  31. ACLOVIR [Concomitant]
     Dosage: 1 UNKNOWN
     Route: 061
     Dates: start: 20191030, end: 20191031
  32. AUGMENTIN [Concomitant]
     Active Substance: AMOXICILLIN\CLAVULANATE POTASSIUM
     Indication: PNEUMONIA
     Route: 048
     Dates: start: 20191016, end: 20191107
  33. KASCOAL [Concomitant]
     Route: 048
     Dates: start: 20191018, end: 20191019
  34. ESOMEPRAZOLE. [Concomitant]
     Active Substance: ESOMEPRAZOLE MAGNESIUM
     Indication: DUODENAL ULCER
     Route: 042
     Dates: start: 20191002, end: 20191017
  35. RASITOL [FUROSEMIDE] [Concomitant]
     Indication: HYPERTENSION
     Route: 042
     Dates: start: 20191009, end: 20191012
  36. RASITOL [FUROSEMIDE] [Concomitant]
     Route: 042
     Dates: start: 20191015, end: 20191016
  37. ATROVENT [Concomitant]
     Active Substance: IPRATROPIUM BROMIDE
     Indication: ASTHMA
     Route: 065
     Dates: start: 20190915, end: 20191017
  38. INDERAL [Concomitant]
     Active Substance: PROPRANOLOL HYDROCHLORIDE
     Indication: CORONARY ARTERY DISEASE
  39. ENCORE [ACETYLCYSTEINE] [Concomitant]
     Indication: PNEUMONIA
     Route: 011
     Dates: start: 20191001, end: 20191017
  40. ACLOVIR [Concomitant]
     Dosage: 1 UNKNOWN
     Route: 061
     Dates: start: 20191028, end: 20191029
  41. ATROVENT [Concomitant]
     Active Substance: IPRATROPIUM BROMIDE
     Route: 065
     Dates: start: 20191106, end: 20191111
  42. ACTOS [Concomitant]
     Active Substance: PIOGLITAZONE HYDROCHLORIDE
     Route: 048
     Dates: start: 20191023, end: 20191108
  43. ALPRAZOLAM. [Concomitant]
     Active Substance: ALPRAZOLAM
     Indication: INSOMNIA
     Route: 048
  44. ACTEIN [Concomitant]
     Indication: PNEUMONIA
     Route: 048
     Dates: start: 20191030, end: 20191111
  45. BISACODYL. [Concomitant]
     Active Substance: BISACODYL
     Route: 048
     Dates: start: 20191108, end: 20191111
  46. XYZAL [Concomitant]
     Active Substance: LEVOCETIRIZINE DIHYDROCHLORIDE
     Indication: PRURITUS
     Route: 048
     Dates: start: 20191108
  47. MEGEST [MEGESTROL ACETATE] [Concomitant]
     Indication: INCREASED APPETITE
     Route: 048
     Dates: start: 20191021, end: 20191111
  48. NOVONORM [Concomitant]
     Active Substance: REPAGLINIDE
     Route: 048
     Dates: start: 20191108
  49. PARAMOL [PARACETAMOL] [Concomitant]
     Route: 047
     Dates: start: 20191112, end: 20191113

REACTIONS (1)
  - Hypoglycaemia [Not Recovered/Not Resolved]

NARRATIVE: CASE EVENT DATE: 20191111
